FAERS Safety Report 8997466 (Version 2)
Quarter: 2013Q1

REPORT INFORMATION
  Report Type: Spontaneous
  Country: US (occurrence: US)
  Receive Date: 20130104
  Receipt Date: 20130215
  Transmission Date: 20140127
  Serious: Yes (Other)
  Sender: FDA-Public Use
  Company Number: US-009507513-1301USA000674

PATIENT
  Sex: Female

DRUGS (22)
  1. FOSAMAX [Suspect]
     Route: 048
  2. LYRICA [Concomitant]
     Dosage: 1 DF, Q12H
     Route: 048
  3. ADVAIR [Concomitant]
     Dosage: 1 DF, BID
     Route: 055
  4. COMBIVENT [Concomitant]
     Dosage: 2 DF, Q6H, PRN
     Route: 055
  5. XANAX [Concomitant]
     Indication: ANXIETY
     Dosage: 1 DF, BID, PRN
  6. METHADONE HYDROCHLORIDE [Concomitant]
     Indication: PAIN
     Dosage: 2 DF, QD
     Route: 048
  7. INDERAL [Concomitant]
     Dosage: 1 DF, BID
     Route: 048
  8. COMPAZINE [Concomitant]
     Dosage: 1 DF, TID, PRN
     Route: 048
  9. ALBUTEROL [Concomitant]
     Dosage: 2 DF, QID
     Route: 055
  10. CALTRATE WITH VITAMIN D [Concomitant]
     Dosage: 1 DF, BID
     Route: 048
  11. PLAVIX [Concomitant]
     Dosage: 1 DF, QD
     Route: 048
  12. PRAVASTATIN SODIUM [Concomitant]
     Dosage: 1 DF, QD
     Route: 048
  13. INDERAL [Concomitant]
     Dosage: 1 DF, BID
     Route: 048
  14. LASIX (FUROSEMIDE SODIUM) [Concomitant]
     Dosage: 1 DF, QD, PRN
     Route: 048
  15. POTASSIUM CHLORIDE [Concomitant]
     Dosage: 1 DF, BID
     Route: 048
  16. REGLAN [Concomitant]
     Dosage: 1 DF, QID, AC AND BEDTIME
     Route: 048
  17. OMEGA-3 MARINE TRIGLYCERIDES [Concomitant]
     Dosage: 1 DF, TID
     Route: 048
  18. GAVISCON (ALGINIC ACID (+) ALUMINUM HYDROXIDE (+) MAGNESIUM TRISILICAT [Concomitant]
     Dosage: 2 DF, QW, AS NEEDED
     Route: 048
  19. CHONDROITIN SULFATE SODIUM (+) GLUCOSAMINE SULFATE [Concomitant]
     Dosage: 1 DF, TID, FORMULATION SOFTGEL
     Route: 048
  20. VITAMINS (UNSPECIFIED) [Concomitant]
     Dosage: 1 DF, QD
     Route: 048
  21. PERI-COLACE [Concomitant]
     Dosage: 1 DF, BID
     Route: 048
  22. PROTONIX [Concomitant]
     Dosage: 1 DF, BID, FORMULATION DELAYED RELEASE
     Route: 048

REACTIONS (19)
  - Colon cancer [Unknown]
  - Nausea [Unknown]
  - Drug hypersensitivity [Unknown]
  - Hypothyroidism [Unknown]
  - Asthma [Unknown]
  - Radiculitis brachial [Unknown]
  - Chronic obstructive pulmonary disease [Unknown]
  - Cardiac failure congestive [Unknown]
  - Intervertebral disc degeneration [Unknown]
  - Intervertebral disc displacement [Unknown]
  - Gastrooesophageal reflux disease [Unknown]
  - Essential hypertension [Unknown]
  - Essential hypertension [Unknown]
  - Impaired gastric emptying [Unknown]
  - Impaired fasting glucose [Unknown]
  - Back pain [Unknown]
  - Type V hyperlipidaemia [Unknown]
  - Chondropathy [Unknown]
  - Bone disorder [Unknown]
